FAERS Safety Report 8406257-4 (Version None)
Quarter: 2012Q2

REPORT INFORMATION
  Report Type: 
  Country: None (occurrence: None)
  Receive Date: 20120604
  Receipt Date: 20120528
  Transmission Date: 20120825
  Serious: Yes (Other)
  Sender: FDA-Public Use
  Company Number: PHHY2012BR025435

PATIENT
  Age: 30 Year
  Sex: Female
  Weight: 92 kg

DRUGS (4)
  1. CARBAMAZEPINE [Suspect]
     Dosage: 400 MG, BID
     Route: 048
  2. CLONAZEPAM [Concomitant]
     Dosage: 1 DF, QD
     Dates: end: 20120301
  3. CLOBAZAM [Concomitant]
     Indication: CONVULSION
     Dosage: 1 DF, QD
     Dates: start: 20120401
  4. CARBAMAZEPINE [Suspect]
     Indication: CONVULSION
     Dosage: 200 MG, TID
     Route: 048

REACTIONS (3)
  - BIPOLAR DISORDER [None]
  - MATERNAL EXPOSURE DURING PREGNANCY [None]
  - CONVULSION [None]
